FAERS Safety Report 16892674 (Version 2)
Quarter: 2019Q4

REPORT INFORMATION
  Report Type: Spontaneous
  Country: GB (occurrence: GB)
  Receive Date: 20191007
  Receipt Date: 20191203
  Transmission Date: 20200122
  Serious: Yes (Hospitalization, Other)
  Sender: FDA-Public Use
  Company Number: GB-BIOGEN-2019BI00792286

PATIENT
  Age: 60 Year
  Sex: Female
  Weight: 64 kg

DRUGS (1)
  1. PLEGRIDY [Suspect]
     Active Substance: PEGINTERFERON BETA-1A
     Indication: RELAPSING-REMITTING MULTIPLE SCLEROSIS
     Route: 058
     Dates: start: 2019

REACTIONS (9)
  - Urinary tract infection [Unknown]
  - Seizure [Unknown]
  - Mobility decreased [Unknown]
  - Syncope [Recovered/Resolved]
  - Loss of consciousness [Unknown]
  - Vomiting [Unknown]
  - Malaise [Unknown]
  - Fall [Recovered/Resolved]
  - Head injury [Unknown]

NARRATIVE: CASE EVENT DATE: 20190920
